FAERS Safety Report 4904583-4 (Version None)
Quarter: 2006Q1

REPORT INFORMATION
  Report Type: 
  Country: None (occurrence: None)
  Receive Date: 20060208
  Receipt Date: 20060127
  Transmission Date: 20060701
  Serious: Yes (Hospitalization)
  Sender: FDA-Public Use
  Company Number: FR-ROCHE-434068

PATIENT
  Age: 39 Year
  Sex: Male

DRUGS (8)
  1. VALIUM [Suspect]
     Indication: DRUG USE FOR UNKNOWN INDICATION
     Route: 048
     Dates: start: 20050810
  2. SUBUTEX [Suspect]
     Indication: DRUG USE FOR UNKNOWN INDICATION
     Route: 048
     Dates: start: 20051205
  3. CLOZAPINE [Suspect]
     Dosage: DRUG NAME REPORTED AS CLOZAPINE PANPHARMA.
     Route: 048
     Dates: start: 20051206, end: 20051226
  4. CLOZAPINE [Suspect]
     Route: 048
     Dates: start: 20051227
  5. EQUANIL [Suspect]
     Indication: DRUG USE FOR UNKNOWN INDICATION
     Route: 048
     Dates: start: 20051124
  6. LEPTICUR [Suspect]
     Indication: DRUG USE FOR UNKNOWN INDICATION
     Route: 048
     Dates: start: 20050612
  7. TERCIAN [Suspect]
     Route: 048
     Dates: start: 20050730
  8. TERCIAN [Suspect]
     Dosage: REPORTED TO BE TAKEN AS NEEDED.
     Route: 048
     Dates: start: 20051226

REACTIONS (5)
  - BLOOD CREATINE PHOSPHOKINASE INCREASED [None]
  - HYPERTHERMIA [None]
  - INFECTION [None]
  - LEUKOCYTOSIS [None]
  - MYALGIA [None]
